FAERS Safety Report 15956036 (Version 1)
Quarter: 2019Q1

REPORT INFORMATION
  Report Type: Spontaneous
  Country: CA (occurrence: CA)
  Receive Date: 20190213
  Receipt Date: 20190213
  Transmission Date: 20190417
  Serious: Yes (Hospitalization)
  Sender: FDA-Public Use
  Company Number: CA-INDIVIOR INC.-INDV-117650-2019

PATIENT
  Age: 24 Year
  Sex: Female

DRUGS (3)
  1. SUBOXONE [Suspect]
     Active Substance: BUPRENORPHINE HYDROCHLORIDE\NALOXONE HYDROCHLORIDE
     Indication: THERAPY CESSATION
     Dosage: 4 MILLIGRAM (2 EVERY 1 DAY)
     Route: 048
  2. SUBOXONE [Suspect]
     Active Substance: BUPRENORPHINE HYDROCHLORIDE\NALOXONE HYDROCHLORIDE
     Dosage: 20 MILLIGRAM (1 EVERY 1 DAY)
     Route: 048
  3. SUBOXONE [Suspect]
     Active Substance: BUPRENORPHINE HYDROCHLORIDE\NALOXONE HYDROCHLORIDE
     Indication: THERAPY CESSATION
     Dosage: 2 DOSAGE FORM, QD
     Route: 048

REACTIONS (8)
  - Sputum discoloured [Unknown]
  - Pharyngitis [Unknown]
  - Speech disorder [Unknown]
  - Cough [Unknown]
  - Oropharyngeal pain [Unknown]
  - Intentional product use issue [Unknown]
  - Upper respiratory tract congestion [Unknown]
  - Epiglottitis [Unknown]
